FAERS Safety Report 7526041-3 (Version None)
Quarter: 2011Q2

REPORT INFORMATION
  Report Type: 
  Country: None (occurrence: None)
  Receive Date: 20110606
  Receipt Date: 20101015
  Transmission Date: 20111010
  Serious: Yes (Hospitalization, Other)
  Sender: FDA-Public Use
  Company Number: TW-BAYER-201042199GPV

PATIENT
  Age: 54 Year
  Sex: Male
  Weight: 69 kg

DRUGS (47)
  1. SORAFENIB [Suspect]
     Indication: HEPATIC NEOPLASM MALIGNANT
     Route: 048
     Dates: start: 20100429, end: 20100614
  2. SILYMARIN [Concomitant]
     Dosage: 210 MG (DAILY DOSE), ,
     Dates: start: 20100603, end: 20100609
  3. TRAMADOL HYDROCHLORIDE [Concomitant]
     Dosage: 300 MG (DAILY DOSE), ,
     Dates: start: 20100614, end: 20100618
  4. METOCLOPRAMIDE [Concomitant]
     Indication: VOMITING
     Dosage: 10 MG (DAILY DOSE), ,
     Dates: start: 20100917, end: 20100922
  5. GRANISETRON [Concomitant]
     Dosage: 1 MG (DAILY DOSE), QD,
  6. GLYBURIDE [Concomitant]
     Indication: DIABETES MELLITUS
     Dosage: 5 MG (DAILY DOSE), QD,
     Dates: start: 20100419, end: 20100526
  7. MAGNESIUM OXIDE [Concomitant]
     Dosage: 500 MG (DAILY DOSE), ,
     Dates: start: 20100513, end: 20100526
  8. MAGNESIUM OXIDE [Concomitant]
     Dates: start: 20100614, end: 20100718
  9. TRAMADOL HYDROCHLORIDE [Concomitant]
     Indication: ABDOMINAL PAIN
     Dosage: 200 MG (DAILY DOSE), QD,
     Dates: start: 20100422, end: 20100428
  10. MORPHINE [Concomitant]
     Dosage: 3 MG (DAILY DOSE), ,
     Dates: start: 20100922, end: 20100922
  11. PANTOPRAZOLE [Concomitant]
     Dosage: 40 MG (DAILY DOSE), QD,
  12. SORAFENIB [Suspect]
     Route: 048
     Dates: start: 20100723, end: 20100902
  13. BLINDED SORAFENIB (RAF KINASE INHIBITOR) [Suspect]
     Dosage: 150 MG (DAILY DOSE), QD, ORAL
     Route: 048
     Dates: start: 20100615, end: 20100722
  14. BLINDED SORAFENIB (RAF KINASE INHIBITOR) [Suspect]
     Dosage: 150 MG (DAILY DOSE), , ORAL
     Route: 048
     Dates: start: 20100903, end: 20100906
  15. GLYBURIDE [Concomitant]
     Dosage: 5 MG (DAILY DOSE), ,
     Dates: start: 20100503, end: 20100609
  16. TRAMADOL HYDROCHLORIDE [Concomitant]
     Dosage: 200 MG (DAILY DOSE), ,
     Dates: start: 20100923, end: 20100930
  17. ATIVAN [Concomitant]
     Dosage: 2 MG (DAILY DOSE), ,
     Dates: start: 20100621, end: 20100704
  18. LACTULOSE [Concomitant]
     Indication: CONSTIPATION
     Route: 048
     Dates: start: 20100930
  19. METOCLOPRAMIDE [Concomitant]
     Dosage: 30 MG (DAILY DOSE), ,
     Dates: start: 20100923, end: 20100925
  20. SORAFENIB [Suspect]
     Route: 048
     Dates: start: 20100903, end: 20100906
  21. SILYMARIN [Concomitant]
     Dosage: 210 MG (DAILY DOSE), ,
     Dates: start: 20100614, end: 20100618
  22. BUPRENORPHINE [Concomitant]
     Indication: ABDOMINAL PAIN
     Dosage: 0.2 MG (DAILY DOSE), PRN,
     Dates: start: 20100422, end: 20100505
  23. MAGNESIUM OXIDE [Concomitant]
     Dosage: 1500 MG (DAILY DOSE), ,
     Dates: start: 20100925
  24. TRAMADOL HYDROCHLORIDE [Concomitant]
     Dosage: 300 MG (DAILY DOSE), ,
     Dates: start: 20100603, end: 20100609
  25. BLINDED SORAFENIB (RAF KINASE INHIBITOR) [Suspect]
     Dosage: 150 MG (DAILY DOSE), , ORAL
     Route: 048
     Dates: start: 20100723, end: 20100902
  26. MORPHINE [Concomitant]
     Dosage: 10 MG (DAILY DOSE), ,
     Dates: start: 20100513, end: 20100519
  27. ESTAZOLAM [Concomitant]
     Indication: INSOMNIA
     Dosage: 2 MG (DAILY DOSE), ,
     Dates: start: 20100705, end: 20100718
  28. BLINDED SORAFENIB (RAF KINASE INHIBITOR) [Suspect]
     Indication: THROMBOSIS PROPHYLAXIS
     Dosage: 150 MG (DAILY DOSE), QD, ORAL
     Route: 048
     Dates: start: 20100429, end: 20100614
  29. SILYMARIN [Concomitant]
     Dates: start: 20100930
  30. TRAMADOL HYDROCHLORIDE [Concomitant]
     Dosage: 300 MG (DAILY DOSE), ,
     Dates: start: 20100909, end: 20100921
  31. CLONAZEPAM [Concomitant]
     Indication: INSOMNIA
     Dosage: 2 MG (DAILY DOSE), ,
     Dates: start: 20100819, end: 20100922
  32. BISACODYL [Concomitant]
     Indication: CONSTIPATION
     Dosage: 10 MG (DAILY DOSE), ,
     Dates: start: 20100920, end: 20100921
  33. SILYMARIN [Concomitant]
     Indication: HEPATITIS B
     Dosage: 210 MG (DAILY DOSE), QD,
     Dates: start: 20100416, end: 20100526
  34. SILYMARIN [Concomitant]
     Dates: start: 20100909, end: 20100922
  35. GLYBURIDE [Concomitant]
     Dosage: 5 MG (DAILY DOSE), ,
     Dates: start: 20100601, end: 20100618
  36. MAGNESIUM OXIDE [Concomitant]
     Indication: CONSTIPATION
     Dosage: 750 MG (DAILY DOSE), ,
     Dates: start: 20100422, end: 20100512
  37. MAGNESIUM OXIDE [Concomitant]
     Dosage: 750 MG (DAILY DOSE), ,
     Dates: start: 20100921, end: 20100924
  38. TRAMADOL HYDROCHLORIDE [Concomitant]
     Dosage: 100 MG (DAILY DOSE), ,
     Dates: start: 20100922, end: 20100922
  39. ZOLPIDEM [Concomitant]
     Indication: INSOMNIA
     Dosage: 10 MG (DAILY DOSE), ,
     Dates: start: 20100719, end: 20100922
  40. TELBIVUDINE [Concomitant]
     Dosage: 600 MG (DAILY DOSE), QD,
  41. SORAFENIB [Suspect]
     Route: 048
     Dates: start: 20100615, end: 20100722
  42. MAGNESIUM OXIDE [Concomitant]
     Dosage: 500 MG (DAILY DOSE), ,
     Dates: start: 20100603, end: 20100609
  43. MORPHINE [Concomitant]
     Indication: ABDOMINAL PAIN
     Dosage: 10 MG (DAILY DOSE), PRN,
     Dates: start: 20100603, end: 20100609
  44. ATIVAN [Concomitant]
     Indication: INSOMNIA
     Dosage: 0.5 MG (DAILY DOSE), ,
     Dates: start: 20100614, end: 20100620
  45. ESTAZOLAM [Concomitant]
     Dosage: 2 MG (DAILY DOSE), ,
     Dates: start: 20100805, end: 20100818
  46. BISACODYL [Concomitant]
     Dosage: 10 MG (DAILY DOSE), ,
     Dates: start: 20100923
  47. HALOPERIDOL [Concomitant]
     Dosage: 1 MG (DAILY DOSE), HS,

REACTIONS (3)
  - URINARY TRACT INFECTION [None]
  - GASTRIC ULCER [None]
  - VARICES OESOPHAGEAL [None]
